FAERS Safety Report 8236747-9 (Version None)
Quarter: 2012Q1

REPORT INFORMATION
  Report Type: 
  Country: None (occurrence: None)
  Receive Date: 20120326
  Receipt Date: 20120326
  Transmission Date: 20120608
  Serious: Yes (Other)
  Sender: FDA-Public Use
  Company Number: None

PATIENT
  Age: 51 Year
  Sex: Female
  Weight: 80.7403 kg

DRUGS (1)
  1. BONIVA [Suspect]
     Indication: BONE DISORDER
     Dosage: 3 MG IV INFUSION 1 EVERY 6 MO. VAIN
     Route: 042
     Dates: start: 20080624

REACTIONS (12)
  - PAIN IN EXTREMITY [None]
  - BONE PAIN [None]
  - BONE DENSITY DECREASED [None]
  - TOOTH EXTRACTION [None]
  - MALAISE [None]
  - INFLUENZA LIKE ILLNESS [None]
  - CHEST PAIN [None]
  - DYSPNOEA [None]
  - PAIN IN JAW [None]
  - MYOCARDIAL INFARCTION [None]
  - TOOTHACHE [None]
  - ARTHRALGIA [None]
